FAERS Safety Report 17398513 (Version 6)
Quarter: 2022Q3

REPORT INFORMATION
  Report Type: Spontaneous
  Country: DE (occurrence: DE)
  Receive Date: 20200210
  Receipt Date: 20220707
  Transmission Date: 20221027
  Serious: Yes (Other)
  Sender: FDA-Public Use
  Company Number: None

PATIENT
  Age: 15 Year
  Sex: Female

DRUGS (6)
  1. ETOPOSIDE [Suspect]
     Active Substance: ETOPOSIDE
     Indication: Alveolar rhabdomyosarcoma
     Dosage: 150 MG/M2 ON DAY 1 AND 3 (50 % REDUCED DOSE OF ICE REGIMEN)
     Route: 065
     Dates: start: 201101
  2. ETOPOSIDE [Suspect]
     Active Substance: ETOPOSIDE
     Dosage: 75 MG/M2 ON DAY 1 AND DAY 3 (25% REDUCED-DOSE OF THE ICE REGIMEN)
     Route: 065
     Dates: start: 201102
  3. CARBOPLATIN [Suspect]
     Active Substance: CARBOPLATIN
     Indication: Alveolar rhabdomyosarcoma
     Dosage: 100 MG/M2, ON DAY 1 AND DAY 3 (50% REDUCED-DOSE OF THE ICE REGIMEN)
     Route: 065
     Dates: start: 201101
  4. CARBOPLATIN [Suspect]
     Active Substance: CARBOPLATIN
     Dosage: 50 MG/M2, ON DAY 1 AND DAY 3 (25% REDUCED-DOSE OF THE ICE REGIMEN)
     Route: 065
     Dates: start: 201102
  5. IFOSFAMIDE [Suspect]
     Active Substance: IFOSFAMIDE
     Indication: Alveolar rhabdomyosarcoma
     Dosage: 1.5 G/M2 ON DAY 1 AND 3 (50 % REDUCED DOSE OF ICE REGIMEN)
     Route: 065
     Dates: start: 201101
  6. IFOSFAMIDE [Suspect]
     Active Substance: IFOSFAMIDE
     Dosage: 0.75 G/M2 ON DAY 1 AND DAY 3 (25% REDUCED-DOSE OF THE ICE REGIMEN)
     Route: 065
     Dates: start: 201102

REACTIONS (5)
  - Therapy non-responder [Unknown]
  - Rhabdomyosarcoma recurrent [Unknown]
  - Erythema [Recovered/Resolved]
  - Erythema [Unknown]
  - Product use in unapproved indication [Unknown]

NARRATIVE: CASE EVENT DATE: 20110201
